FAERS Safety Report 7772314-9 (Version None)
Quarter: 2011Q3

REPORT INFORMATION
  Report Type: 
  Country: None (occurrence: None)
  Receive Date: 20110922
  Receipt Date: 20100824
  Transmission Date: 20111222
  Serious: Yes (Other)
  Sender: FDA-Public Use
  Company Number: US-ASTRAZENECA-2008UW04660

PATIENT
  Age: 16574 Day
  Sex: Female
  Weight: 87.5 kg

DRUGS (36)
  1. SEROQUEL [Suspect]
     Route: 048
     Dates: start: 20040301, end: 20050101
  2. SEROQUEL [Suspect]
     Dosage: 200 MG
     Route: 048
     Dates: start: 20050101
  3. ERYTHROMYCIN [Concomitant]
     Route: 065
  4. SEROQUEL [Suspect]
     Dosage: 200-800 MG
     Route: 048
     Dates: start: 20040930
  5. NEURONTIN [Concomitant]
     Route: 065
  6. SEROQUEL [Suspect]
     Indication: ABNORMAL SLEEP-RELATED EVENT
     Route: 048
     Dates: start: 20040101, end: 20051101
  7. SEROQUEL [Suspect]
     Dosage: 200 MG
     Route: 048
     Dates: start: 20050101
  8. RISPERDAL [Concomitant]
     Indication: DEPRESSION
     Dates: start: 20060101, end: 20060101
  9. ZYPREXA [Concomitant]
     Indication: ANXIETY
     Dates: start: 20051021, end: 20051231
  10. SEROQUEL [Suspect]
     Indication: ANXIETY
     Route: 048
     Dates: start: 20040101, end: 20051101
  11. SEROQUEL [Suspect]
     Indication: PARANOIA
     Route: 048
     Dates: start: 20040101, end: 20051101
  12. SEROQUEL [Suspect]
     Route: 048
     Dates: start: 20040301, end: 20050101
  13. SEROQUEL [Suspect]
     Dosage: 200-800 MG
     Route: 048
     Dates: start: 20040930
  14. TRIAMCINOLONE [Concomitant]
     Route: 065
  15. CORTISPORIN [Concomitant]
     Route: 065
  16. ZYPREXA [Concomitant]
     Indication: BIPOLAR DISORDER
     Dates: start: 20051021, end: 20051231
  17. SEROQUEL [Suspect]
     Indication: BIPOLAR DISORDER
     Route: 048
     Dates: start: 20040101, end: 20051101
  18. SEROQUEL [Suspect]
     Route: 048
     Dates: start: 20040301, end: 20050101
  19. SEROQUEL [Suspect]
     Dosage: 200-800 MG
     Route: 048
     Dates: start: 20040930
  20. ELIMITE [Concomitant]
     Route: 065
  21. AMBIEN [Concomitant]
     Route: 065
  22. BENADRYL [Concomitant]
     Route: 065
  23. ZYPREXA [Concomitant]
     Indication: DEPRESSION
     Dates: start: 20051021, end: 20051231
  24. SEROQUEL [Suspect]
     Dosage: 200 MG
     Route: 048
     Dates: start: 20050101
  25. SEROQUEL [Suspect]
     Dosage: 200 MG
     Route: 048
     Dates: start: 20050101
  26. LIPITOR [Concomitant]
     Route: 065
  27. SYNTHROID [Concomitant]
     Dosage: 0.044 MG TO 0.088 MG
     Route: 065
  28. RISPERDAL [Concomitant]
     Indication: ANXIETY
     Dates: start: 20060101, end: 20060101
  29. ABILIFY [Concomitant]
     Dates: start: 20081101
  30. SEROQUEL [Suspect]
     Indication: DEPRESSION
     Route: 048
     Dates: start: 20040101, end: 20051101
  31. SEROQUEL [Suspect]
     Dosage: 200 MG
     Route: 048
     Dates: start: 20050101
  32. RISPERDAL [Concomitant]
     Indication: BIPOLAR DISORDER
     Dates: start: 20060101, end: 20060101
  33. SEROQUEL [Suspect]
     Route: 048
     Dates: start: 20040301, end: 20050101
  34. SEROQUEL [Suspect]
     Route: 048
     Dates: start: 20040301, end: 20050101
  35. SEROQUEL [Suspect]
     Dosage: 200-800 MG
     Route: 048
     Dates: start: 20040930
  36. SEROQUEL [Suspect]
     Dosage: 200-800 MG
     Route: 048
     Dates: start: 20040930

REACTIONS (29)
  - ARTHROPOD BITE [None]
  - OTITIS MEDIA [None]
  - THYROID DISORDER [None]
  - HEADACHE [None]
  - DIABETIC COMPLICATION [None]
  - FOOD ALLERGY [None]
  - BACK PAIN [None]
  - OBESITY [None]
  - VIRAL INFECTION [None]
  - DIARRHOEA [None]
  - STAPHYLOCOCCAL INFECTION [None]
  - TYPE 2 DIABETES MELLITUS [None]
  - HYPERLIPIDAEMIA [None]
  - DEPRESSION [None]
  - INSOMNIA [None]
  - MOOD SWINGS [None]
  - VULVOVAGINAL MYCOTIC INFECTION [None]
  - HYPOMANIA [None]
  - LICE INFESTATION [None]
  - BLOOD TRIGLYCERIDES INCREASED [None]
  - HYPOTHYROIDISM [None]
  - PARANOIA [None]
  - SYNCOPE [None]
  - DERMAL CYST [None]
  - PARAESTHESIA [None]
  - ACARODERMATITIS [None]
  - BLOOD TRIGLYCERIDES [None]
  - UPPER RESPIRATORY TRACT INFECTION [None]
  - BLOOD CHOLESTEROL INCREASED [None]
